FAERS Safety Report 14074481 (Version 2)
Quarter: 2017Q4

REPORT INFORMATION
  Report Type: Spontaneous
  Country: BE (occurrence: BE)
  Receive Date: 20171011
  Receipt Date: 20171117
  Transmission Date: 20180321
  Serious: Yes (Hospitalization, Other)
  Sender: FDA-Public Use
  Company Number: BE-CELLTRION HEALTHCARE JAPAN K.K.-2017BE013681

PATIENT

DRUGS (7)
  1. ASAFLOW [Concomitant]
     Active Substance: ASPIRIN
     Dosage: 80 MG, 1X/DAY (8 PM)
     Route: 048
  2. INFLECTRA [Suspect]
     Active Substance: INFLIXIMAB-DYYB
     Indication: COLITIS ULCERATIVE
     Dosage: 7.5 MG, UNK
     Route: 065
     Dates: start: 201703, end: 20171003
  3. MICTONORM [Concomitant]
     Active Substance: PROPIVERINE HYDROCHLORIDE
     Dosage: 30 MG, 1X/DAY ( 8 PM)
     Route: 048
  4. PANTOMED                           /00178901/ [Concomitant]
     Dosage: 40 MG, 2X/DAY (8AM, 8 PM)
     Route: 048
  5. PENTASA [Concomitant]
     Active Substance: MESALAMINE
     Dosage: 1 DF, 2X/DAY (1 BAG OF 1 G, 8 AM, 8 PM)
  6. SIPRALEXA [Concomitant]
     Active Substance: ESCITALOPRAM OXALATE
     Dosage: 10 MG, 1X/DAY (8 AM)
     Route: 048
  7. SPASMOMEN [Concomitant]
     Active Substance: OTILONIUM BROMIDE
     Dosage: 40 MG, 2X/DAY (8 AM, 8 PM)
     Route: 048

REACTIONS (8)
  - Malaise [Recovered/Resolved]
  - Pyrexia [Recovered/Resolved]
  - Myalgia [Recovered/Resolved]
  - Photophobia [Unknown]
  - Meningitis viral [Recovered/Resolved]
  - Leukocytosis [Recovered/Resolved]
  - Headache [Unknown]
  - Pyuria [Recovered/Resolved]

NARRATIVE: CASE EVENT DATE: 20171003
